FAERS Safety Report 21610718 (Version 2)
Quarter: 2022Q4

REPORT INFORMATION
  Report Type: Spontaneous
  Country: US (occurrence: None)
  Receive Date: 20221117
  Receipt Date: 20221227
  Transmission Date: 20230112
  Serious: Yes (Other)
  Sender: FDA-Public Use
  Company Number: US-ROCHE-3214919

PATIENT
  Sex: Female
  Weight: 167.07 kg

DRUGS (9)
  1. OCREVUS [Suspect]
     Active Substance: OCRELIZUMAB
     Indication: Relapsing-remitting multiple sclerosis
     Dosage: NO
     Route: 042
     Dates: start: 20201005, end: 20201106
  2. OCREVUS [Suspect]
     Active Substance: OCRELIZUMAB
     Route: 042
     Dates: start: 20210517
  3. OCREVUS [Suspect]
     Active Substance: OCRELIZUMAB
     Dosage: MOST RECENT DOSE OF OCREVUS 03/NOV/2022
     Route: 042
     Dates: start: 20220503, end: 20221103
  4. SOLU-CORTEF [Concomitant]
     Active Substance: HYDROCORTISONE SODIUM SUCCINATE
     Indication: Premedication
     Route: 042
  5. BENADRYL [Concomitant]
     Active Substance: DIPHENHYDRAMINE HYDROCHLORIDE
     Indication: Premedication
     Route: 042
  6. TYLENOL [Concomitant]
     Active Substance: ACETAMINOPHEN
     Indication: Premedication
     Route: 048
  7. ALBUTEROL SULFATE [Concomitant]
     Active Substance: ALBUTEROL SULFATE
     Indication: Asthma
     Dosage: 90 BASE
     Route: 055
  8. AMLODIPINE [Concomitant]
     Active Substance: AMLODIPINE BESYLATE
     Indication: Blood pressure measurement
     Route: 048
  9. IRON [Concomitant]
     Active Substance: IRON
     Route: 048

REACTIONS (8)
  - Multiple sclerosis relapse [Unknown]
  - Maternal exposure during pregnancy [Unknown]
  - Throat irritation [Recovered/Resolved]
  - Throat clearing [Recovered/Resolved]
  - Pain [Unknown]
  - Dementia [Unknown]
  - Balance disorder [Unknown]
  - Incontinence [Unknown]

NARRATIVE: CASE EVENT DATE: 20220503
